FAERS Safety Report 6121325-8 (Version None)
Quarter: 2009Q1

REPORT INFORMATION
  Report Type: 
  Country: None (occurrence: None)
  Receive Date: 20090312
  Receipt Date: 20090312
  Transmission Date: 20090719
  Serious: No
  Sender: FDA-Public Use
  Company Number: None

PATIENT
  Age: 45 Year
  Sex: Male
  Weight: 71.6683 kg

DRUGS (2)
  1. LUNESTA [Suspect]
     Indication: DEATH OF RELATIVE
     Dosage: 1 SOMETIMES 2 PER DAY PO
     Route: 048
     Dates: start: 20040120, end: 20090310
  2. LUNESTA [Suspect]
     Indication: SLEEP DISORDER
     Dosage: 1 SOMETIMES 2 PER DAY PO
     Route: 048
     Dates: start: 20040120, end: 20090310

REACTIONS (5)
  - ABNORMAL BEHAVIOUR [None]
  - AMNESIA [None]
  - ANGER [None]
  - DRUG DEPENDENCE [None]
  - INCORRECT DOSE ADMINISTERED [None]
